FAERS Safety Report 21218671 (Version 1)
Quarter: 2022Q3

REPORT INFORMATION
  Report Type: Report from Study
  Country: US (occurrence: US)
  Receive Date: 20220816
  Receipt Date: 20220816
  Transmission Date: 20221027
  Serious: Yes (Death, Hospitalization, Other)
  Sender: FDA-Public Use
  Company Number: US-BRISTOL-MYERS SQUIBB COMPANY-2022-084903

PATIENT
  Age: 57 Year
  Sex: Male
  Weight: 114.9 kg

DRUGS (11)
  1. ROMIDEPSIN [Suspect]
     Active Substance: ROMIDEPSIN
     Indication: Peripheral T-cell lymphoma unspecified
     Dosage: 4 DOSES
     Route: 042
     Dates: start: 20220223, end: 20220226
  2. FLUDARABINE [Concomitant]
     Active Substance: FLUDARABINE PHOSPHATE
     Dates: start: 20220223, end: 20220226
  3. BUSULFAN [Concomitant]
     Active Substance: BUSULFAN
     Dates: start: 20220223, end: 20220226
  4. TACROLIMUS [Concomitant]
     Active Substance: TACROLIMUS
     Dates: start: 20220227
  5. METHOTREXATE [Concomitant]
     Active Substance: METHOTREXATE
     Dates: start: 20220302, end: 20220312
  6. ACYCLOVIR [Concomitant]
     Active Substance: ACYCLOVIR
     Indication: Antiviral prophylaxis
     Dosage: EVERY 12 HRS
     Route: 048
     Dates: start: 20220714
  7. CRESEMBA [Concomitant]
     Active Substance: ISAVUCONAZONIUM SULFATE
     Indication: Allergy prophylaxis
  8. DAPSONE [Concomitant]
     Active Substance: DAPSONE
     Indication: Prophylaxis
  9. SIROLIMUS [Concomitant]
     Active Substance: SIROLIMUS
     Indication: Graft versus host disease
     Dosage: DAILY
     Dates: start: 20220403
  10. JAKAFI [Concomitant]
     Active Substance: RUXOLITINIB
     Indication: Graft versus host disease
  11. PREDNISONE [Concomitant]
     Active Substance: PREDNISONE
     Dosage: START/HOLD AT 10 MG 30/JUN/2022
     Dates: start: 20220630

REACTIONS (8)
  - Acute respiratory failure [Recovered/Resolved]
  - Cardiac failure congestive [Recovered/Resolved]
  - Acute graft versus host disease [Unknown]
  - Cardiogenic shock [Fatal]
  - Haemophagocytic lymphohistiocytosis [Unknown]
  - Thrombotic microangiopathy [Unknown]
  - Cardiac failure chronic [Unknown]
  - Acute kidney injury [Unknown]

NARRATIVE: CASE EVENT DATE: 20220710
